FAERS Safety Report 22133489 (Version 1)
Quarter: 2023Q1

REPORT INFORMATION
  Report Type: Spontaneous
  Country: US (occurrence: None)
  Receive Date: 20230324
  Receipt Date: 20230324
  Transmission Date: 20230418
  Serious: No
  Sender: FDA-Public Use
  Company Number: 2023A054070

PATIENT
  Sex: Male

DRUGS (1)
  1. FARXIGA [Suspect]
     Active Substance: DAPAGLIFLOZIN PROPANEDIOL
     Indication: Blood glucose increased
     Dosage: 5.0MG UNKNOWN
     Route: 048

REACTIONS (2)
  - Male reproductive tract disorder [Not Recovered/Not Resolved]
  - Urinary tract infection fungal [Not Recovered/Not Resolved]
